FAERS Safety Report 16430594 (Version 1)
Quarter: 2019Q3

REPORT INFORMATION
  Report Type: Spontaneous
  Country: US (occurrence: US)
  Receive Date: 20190613
  Receipt Date: 20190613
  Transmission Date: 20191004
  Serious: No
  Sender: FDA-Public Use
  Company Number: None

PATIENT
  Age: 33 Year
  Sex: Female

DRUGS (7)
  1. ZOFRAN [Concomitant]
     Active Substance: ONDANSETRON HYDROCHLORIDE
  2. CLARITIN [Concomitant]
     Active Substance: LORATADINE
  3. EMGALITY [Suspect]
     Active Substance: GALCANEZUMAB-GNLM
     Indication: MIGRAINE
     Dates: start: 20190607
  4. ZULINDAC [Concomitant]
  5. ALEVE [Concomitant]
     Active Substance: NAPROXEN SODIUM
  6. INVOKANA [Concomitant]
     Active Substance: CANAGLIFLOZIN
  7. ZOLOFT [Concomitant]
     Active Substance: SERTRALINE HYDROCHLORIDE

REACTIONS (3)
  - Blood glucose increased [None]
  - Panic attack [None]
  - Feeling jittery [None]

NARRATIVE: CASE EVENT DATE: 20190610
